FAERS Safety Report 7414865-2 (Version None)
Quarter: 2011Q2

REPORT INFORMATION
  Report Type: 
  Country: None (occurrence: None)
  Receive Date: 20110405
  Receipt Date: 20110323
  Transmission Date: 20111010
  Serious: Yes (Hospitalization)
  Sender: FDA-Public Use
  Company Number: 2011001435

PATIENT
  Age: 77 Year
  Sex: Female

DRUGS (13)
  1. SIMETHICONE (DIMETICONE, ACTIVATED) [Concomitant]
  2. KEPPRA [Interacting]
  3. LIDOCAINE [Concomitant]
  4. LOPERAMIDE [Concomitant]
  5. PREDNISONE [Concomitant]
  6. CALCITONIN (CALCITONIN) [Concomitant]
  7. PULMICORT (BUDESONIDE) [Concomitant]
  8. ERLOTINIB (ERLOTINIB) (TABLET) (ERLOTINIB) [Suspect]
     Indication: NON-SMALL CELL LUNG CANCER
     Dosage: (150 MG,DAILY), ORAL
     Route: 048
     Dates: start: 20100625, end: 20110322
  9. ALBUTEROL [Concomitant]
  10. EPIPEN [Concomitant]
  11. HYDROMORPHONE (HYDROMORPHONE) [Concomitant]
  12. LORAZEPAM [Concomitant]
  13. PRIMIDONE [Concomitant]

REACTIONS (7)
  - DISEASE PROGRESSION [None]
  - FAILURE TO THRIVE [None]
  - PAIN [None]
  - SKIN LESION [None]
  - RESPIRATORY DISTRESS [None]
  - RASH [None]
  - METASTASES TO CENTRAL NERVOUS SYSTEM [None]
